FAERS Safety Report 8264642-8 (Version None)
Quarter: 2012Q2

REPORT INFORMATION
  Report Type: 
  Country: None (occurrence: None)
  Receive Date: 20120406
  Receipt Date: 20120326
  Transmission Date: 20120825
  Serious: Yes (Hospitalization)
  Sender: FDA-Public Use
  Company Number: US-ELI_LILLY_AND_COMPANY-US201203008207

PATIENT
  Sex: Male

DRUGS (3)
  1. ADCIRCA [Suspect]
     Indication: PULMONARY HYPERTENSION
     Dosage: 20 MG, QD
     Dates: start: 20111201
  2. TRACLEER [Concomitant]
  3. EPOPROSTENOL [Concomitant]
     Dosage: UNK
     Dates: start: 20120201

REACTIONS (1)
  - HOSPITALISATION [None]
